FAERS Safety Report 11706037 (Version 1)
Quarter: 2015Q4

REPORT INFORMATION
  Report Type: Spontaneous
  Country: FR (occurrence: FR)
  Receive Date: 20151106
  Receipt Date: 20151106
  Transmission Date: 20160304
  Serious: Yes (Other)
  Sender: FDA-Public Use
  Company Number: FR-ELI_LILLY_AND_COMPANY-FR201510008074

PATIENT
  Age: 65 Year
  Sex: Male

DRUGS (1)
  1. CYMBALTA [Suspect]
     Active Substance: DULOXETINE HYDROCHLORIDE
     Indication: LYME DISEASE
     Dosage: UNK, UNKNOWN
     Route: 065

REACTIONS (5)
  - Off label use [Unknown]
  - Abdominal pain upper [Recovered/Resolved]
  - Fatigue [Recovered/Resolved]
  - Blister [Recovered/Resolved]
  - Vertigo [Recovered/Resolved]
